FAERS Safety Report 5886466-9 (Version None)
Quarter: 2008Q3

REPORT INFORMATION
  Report Type: 
  Country: None (occurrence: None)
  Receive Date: 20080917
  Receipt Date: 20080908
  Transmission Date: 20090109
  Serious: Yes (Other)
  Sender: FDA-Public Use
  Company Number: DE-ROCHE-480678

PATIENT
  Sex: Female
  Weight: 59 kg

DRUGS (6)
  1. BONIVA [Suspect]
     Indication: OSTEOPOROSIS
     Dosage: FORM REPORTED AS PRE- FILL SYRINGE. STRENGTH REPORTED AS 3 MG/3 ML.
     Route: 042
     Dates: start: 20061026, end: 20070126
  2. CALCIUM SANDOZ [Concomitant]
     Dosage: DRUG: CALCIUM SANDOZ FORTISS BTA
  3. IBUPROFEN [Concomitant]
     Dosage: DRUG: IBUPROFEN HEUMANN
  4. L-THYROXIN HENNING [Concomitant]
     Dosage: DRUG: L-THYROXIN 150 HENNING
  5. VIGANTOLETTEN [Concomitant]
     Dosage: DRUG: VIGANTOLETTEN 1000
  6. FOSAMAX [Concomitant]
     Dates: end: 20060901

REACTIONS (3)
  - BONE MARROW OEDEMA [None]
  - OSTEONECROSIS [None]
  - PAIN IN JAW [None]
